FAERS Safety Report 15509637 (Version 1)
Quarter: 2018Q4

REPORT INFORMATION
  Report Type: Spontaneous
  Country: DE (occurrence: DE)
  Receive Date: 20181016
  Receipt Date: 20181016
  Transmission Date: 20190205
  Serious: Yes (Other)
  Sender: FDA-Public Use
  Company Number: DE-SA-2018SA282878

PATIENT
  Age: 74 Year
  Sex: Female

DRUGS (6)
  1. HCT [Concomitant]
     Active Substance: HYDROCHLOROTHIAZIDE
     Dosage: DAILY DOSE: 25 MG MILLGRAM(S) EVERY DAYS
  2. BELOC ZOK [Concomitant]
     Active Substance: METOPROLOL SUCCINATE
     Dosage: 1 - 0 1/2
  3. L-THYROXIN [LEVOTHYROXINE SODIUM] [Concomitant]
     Dosage: DAILY DOSE: 25 ?G MICROGRAM(S) EVERY DAYS
  4. PLAVIX [Concomitant]
     Active Substance: CLOPIDOGREL BISULFATE
     Dosage: DAILY DOSE: 75 MG MILLGRAM(S) EVERY 2 DAYS
  5. PRALUENT [Suspect]
     Active Substance: ALIROCUMAB
     Indication: HYPERCHOLESTEROLAEMIA
     Dosage: DAILY DOSE: 150 MG MILLGRAM(S) EVERY 2 WEEKS
     Route: 058
     Dates: start: 20180807, end: 2018
  6. APROVEL [Concomitant]
     Active Substance: IRBESARTAN
     Dosage: DAILY DOSE: 150 MG MILLGRAM(S) EVERY DAYS

REACTIONS (11)
  - Abdominal pain lower [Unknown]
  - Pain in extremity [Unknown]
  - Acne [Unknown]
  - Musculoskeletal pain [Unknown]
  - Balance disorder [Unknown]
  - Somnolence [Unknown]
  - Rash macular [Unknown]
  - Headache [Unknown]
  - Mental impairment [Unknown]
  - Limb discomfort [Unknown]
  - Fatigue [Unknown]

NARRATIVE: CASE EVENT DATE: 201808
